FAERS Safety Report 5799770-X (Version None)
Quarter: 2008Q3

REPORT INFORMATION
  Report Type: 
  Country: None (occurrence: None)
  Receive Date: 20080701
  Receipt Date: 20080616
  Transmission Date: 20090109
  Serious: Yes (Other)
  Sender: FDA-Public Use
  Company Number: 2008BI003114

PATIENT
  Age: 55 Year
  Sex: Female
  Weight: 54.4316 kg

DRUGS (11)
  1. AVONEX [Suspect]
     Indication: MULTIPLE SCLEROSIS
     Dosage: 30 UG; QW; IM
     Route: 030
     Dates: start: 19970101
  2. ASPIRIN [Concomitant]
  3. NADOLOL [Concomitant]
  4. LEVOTHYROXINE SODIUM [Concomitant]
  5. CELEBREX [Concomitant]
  6. FLUOXETINE [Concomitant]
  7. MULTI-VITAMINS [Concomitant]
  8. CALCIUM [Concomitant]
  9. SANCTURA [Concomitant]
  10. MEDROL [Concomitant]
  11. SEROQUEL [Concomitant]

REACTIONS (7)
  - BLADDER SPASM [None]
  - DYSPHAGIA [None]
  - HEPATITIS [None]
  - INTRAOCULAR MELANOMA [None]
  - NERVE COMPRESSION [None]
  - PLATELET COUNT DECREASED [None]
  - RECTAL HAEMORRHAGE [None]
